FAERS Safety Report 9458130 (Version 1)
Quarter: 2013Q3

REPORT INFORMATION
  Report Type: Spontaneous
  Country: US (occurrence: None)
  Receive Date: 20130812
  Receipt Date: 20130812
  Transmission Date: 20140515
  Serious: Yes (Hospitalization, Other)
  Sender: FDA-Public Use
  Company Number: 2013CP000081

PATIENT
  Age: 36 Year
  Sex: Female

DRUGS (1)
  1. OFIRMEV [Suspect]
     Indication: PRODUCT USED FOR UNKNOWN INDICATION
     Dosage: Q6H
     Route: 042
     Dates: start: 2013

REACTIONS (3)
  - Acute hepatic failure [None]
  - Abdominal pain [None]
  - Overdose [None]
